FAERS Safety Report 19919881 (Version 1)
Quarter: 2021Q4

REPORT INFORMATION
  Report Type: Spontaneous
  Country: US (occurrence: US)
  Receive Date: 20211005
  Receipt Date: 20211005
  Transmission Date: 20220303
  Serious: No
  Sender: FDA-Public Use
  Company Number: US-ORGANON-O2109USA001829

PATIENT
  Sex: Male

DRUGS (2)
  1. SINEMET [Suspect]
     Active Substance: CARBIDOPA\LEVODOPA
     Indication: Parkinson^s disease
     Dosage: 2 1/2 TABLETS, EVERY TWO HOURS OR THREE HOURS
     Route: 048
  2. SINEMET [Suspect]
     Active Substance: CARBIDOPA\LEVODOPA
     Dosage: 2 1/2 TABLETS, EVERY TWO HOURS OR THREE HOURS
     Route: 048

REACTIONS (9)
  - Bladder disorder [Unknown]
  - Dry eye [Unknown]
  - Drug effect less than expected [Unknown]
  - Therapeutic product effect delayed [Unknown]
  - Thirst [Unknown]
  - Abdominal discomfort [Unknown]
  - Headache [Unknown]
  - Dyskinesia [Unknown]
  - Hypersomnia [Unknown]

NARRATIVE: CASE EVENT DATE: 20210501
